FAERS Safety Report 7466511-X (Version None)
Quarter: 2011Q2

REPORT INFORMATION
  Report Type: 
  Country: None (occurrence: None)
  Receive Date: 20110509
  Receipt Date: 20100817
  Transmission Date: 20111010
  Serious: No
  Sender: FDA-Public Use
  Company Number: US-ALEXION-A201001023

PATIENT
  Sex: Female
  Weight: 87.1 kg

DRUGS (3)
  1. METHADONE HCL [Concomitant]
     Indication: ARTHRALGIA
     Dosage: UNK
  2. PERCOCET [Concomitant]
     Indication: ARTHRALGIA
     Dosage: UNK
  3. SOLIRIS [Suspect]
     Indication: PAROXYSMAL NOCTURNAL HAEMOGLOBINURIA
     Dosage: UNK
     Route: 042

REACTIONS (2)
  - HAEMATOCRIT DECREASED [None]
  - FATIGUE [None]
